FAERS Safety Report 8040154-1 (Version None)
Quarter: 2012Q1

REPORT INFORMATION
  Report Type: 
  Country: None (occurrence: None)
  Receive Date: 20120111
  Receipt Date: 20111227
  Transmission Date: 20120608
  Serious: No
  Sender: FDA-Public Use
  Company Number: US-AMGEN-USASP2011069100

PATIENT
  Age: 62 Year
  Sex: Female

DRUGS (2)
  1. ENBREL [Suspect]
     Indication: PSORIATIC ARTHROPATHY
     Dosage: 50 MG, QWK
     Dates: start: 20111110
  2. ENBREL [Suspect]
     Indication: FIBROMYALGIA

REACTIONS (4)
  - ARTHRALGIA [None]
  - COUGH [None]
  - BACK PAIN [None]
  - PAIN IN EXTREMITY [None]
